FAERS Safety Report 7528297-X (Version None)
Quarter: 2011Q2

REPORT INFORMATION
  Report Type: 
  Country: None (occurrence: None)
  Receive Date: 20110607
  Receipt Date: 20100708
  Transmission Date: 20111010
  Serious: No
  Sender: FDA-Public Use
  Company Number: US-ASTRAZENECA-2010SE31771

PATIENT
  Age: 874 Month
  Sex: Female

DRUGS (2)
  1. OMEPRAZOLE [Suspect]
     Route: 048
     Dates: start: 20100623
  2. PLAVIX [Interacting]
     Indication: TRANSIENT ISCHAEMIC ATTACK
     Route: 048
     Dates: start: 20100623

REACTIONS (3)
  - DRUG INTERACTION [None]
  - ABDOMINAL PAIN UPPER [None]
  - DIZZINESS [None]
